FAERS Safety Report 25150112 (Version 2)
Quarter: 2025Q2

REPORT INFORMATION
  Report Type: Spontaneous
  Country: US (occurrence: US)
  Receive Date: 20250402
  Receipt Date: 20250505
  Transmission Date: 20250716
  Serious: No
  Sender: BOEHRINGER INGELHEIM
  Company Number: US-Komodo Health-a23aa000006cDDhAAM

PATIENT
  Age: 71 Year
  Sex: Female

DRUGS (1)
  1. COMBIVENT RESPIMAT [Suspect]
     Active Substance: ALBUTEROL SULFATE\IPRATROPIUM BROMIDE
     Indication: Asthma
     Dosage: 4-5 PUFFS

REACTIONS (7)
  - COVID-19 [Unknown]
  - Dyspnoea [Not Recovered/Not Resolved]
  - Influenza [Unknown]
  - Elephantiasis [Not Recovered/Not Resolved]
  - Respiratory tract congestion [Unknown]
  - Off label use [Unknown]
  - Wheezing [Unknown]

NARRATIVE: CASE EVENT DATE: 20241205
